FAERS Safety Report 15010687 (Version 1)
Quarter: 2018Q2

REPORT INFORMATION
  Report Type: Spontaneous
  Country: US (occurrence: US)
  Receive Date: 20180529
  Receipt Date: 20180529
  Transmission Date: 20180711
  Serious: Yes (Hospitalization)
  Sender: FDA-Public Use
  Company Number: None

PATIENT
  Age: 36 Year
  Sex: Male
  Weight: 110.25 kg

DRUGS (2)
  1. EFFEXOR XR [Suspect]
     Active Substance: VENLAFAXINE HYDROCHLORIDE
     Indication: DEPRESSION
     Route: 048
     Dates: start: 20160126
  2. REMERON [Concomitant]
     Active Substance: MIRTAZAPINE

REACTIONS (3)
  - Visual impairment [None]
  - Halo vision [None]
  - Photopsia [None]

NARRATIVE: CASE EVENT DATE: 20160313
